FAERS Safety Report 9109298 (Version 1)
Quarter: 2013Q1

REPORT INFORMATION
  Report Type: Spontaneous
  Country: US (occurrence: US)
  Receive Date: 20130222
  Receipt Date: 20130222
  Transmission Date: 20140127
  Serious: Yes (Hospitalization)
  Sender: FDA-Public Use
  Company Number: US-BAYER-2013-020316

PATIENT
  Age: 22 Year
  Sex: Female

DRUGS (5)
  1. YASMIN [Suspect]
     Indication: DYSMENORRHOEA
     Dosage: UNK
     Dates: start: 2003, end: 20060128
  2. MORPHINE [Concomitant]
     Indication: PAIN MANAGEMENT
  3. DILAUDID [Concomitant]
  4. PERCOCET [Concomitant]
  5. CIPROFLOXACIN [Concomitant]

REACTIONS (5)
  - Pulmonary embolism [None]
  - Pulmonary infarction [None]
  - Musculoskeletal pain [None]
  - Dyspnoea [None]
  - Off label use [None]
